FAERS Safety Report 21368810 (Version 4)
Quarter: 2025Q3

REPORT INFORMATION
  Report Type: Report from Study
  Country: US (occurrence: US)
  Receive Date: 20220923
  Receipt Date: 20250812
  Transmission Date: 20251021
  Serious: Yes (Hospitalization, Other)
  Sender: ROCHE
  Company Number: US-ROCHE-2854250

PATIENT
  Age: 77 Year
  Sex: Female

DRUGS (27)
  1. PULMOZYME [Suspect]
     Active Substance: DORNASE ALFA
     Indication: Bronchiectasis
     Route: 055
     Dates: start: 201012
  2. PULMOZYME [Suspect]
     Active Substance: DORNASE ALFA
     Indication: Lung disorder
     Dosage: 2.5 ML QUANTITY: 1 MONTH
     Route: 055
  3. PULMOZYME [Suspect]
     Active Substance: DORNASE ALFA
     Indication: Scoliosis
     Dosage: NEBULIZER
     Route: 055
     Dates: start: 202105
  4. PULMOZYME [Suspect]
     Active Substance: DORNASE ALFA
     Route: 055
  5. PULMOZYME [Suspect]
     Active Substance: DORNASE ALFA
     Route: 055
  6. PULMOZYME [Suspect]
     Active Substance: DORNASE ALFA
     Route: 055
  7. PULMOZYME [Suspect]
     Active Substance: DORNASE ALFA
     Dosage: INHALE THE CONTENTS OF ONE VIAL VIA NEBULIZATION TWICE DAILY
     Route: 055
  8. SODIUM CHLORIDE [Suspect]
     Active Substance: SODIUM CHLORIDE
     Indication: Lung disorder
     Route: 055
  9. PERCOCET [Concomitant]
     Active Substance: ACETAMINOPHEN\OXYCODONE HYDROCHLORIDE
  10. XANAX [Concomitant]
     Active Substance: ALPRAZOLAM
  11. TRELEGY ELLIPTA [Concomitant]
     Active Substance: FLUTICASONE FUROATE\UMECLIDINIUM BROMIDE\VILANTEROL TRIFENATATE
  12. ROFLUMILAST [Concomitant]
     Active Substance: ROFLUMILAST
  13. TIZANIDINE [Concomitant]
     Active Substance: TIZANIDINE
  14. ZYRTEC [Concomitant]
     Active Substance: CETIRIZINE HYDROCHLORIDE
  15. NITROGLYCERIN [Concomitant]
     Active Substance: NITROGLYCERIN
  16. MAGNESIUM [Concomitant]
     Active Substance: MAGNESIUM
  17. TRIAMCINOLONE [Concomitant]
     Active Substance: TRIAMCINOLONE
  18. OMEPRAZOLE [Concomitant]
     Active Substance: OMEPRAZOLE
  19. ALBUTEROL [Concomitant]
     Active Substance: ALBUTEROL
     Indication: Lung disorder
     Route: 055
  20. CAYSTON [Concomitant]
     Active Substance: AZTREONAM
  21. B12 [Concomitant]
  22. FLONASE [Concomitant]
     Active Substance: FLUTICASONE PROPIONATE
  23. PLAVIX [Concomitant]
     Active Substance: CLOPIDOGREL BISULFATE
  24. TUSSIONEX PENNKINETIC [Concomitant]
     Active Substance: CHLORPHENIRAMINE\HYDROCODONE
  25. ALENDRONATE [Concomitant]
     Active Substance: ALENDRONATE SODIUM
  26. SUCRALFATE [Concomitant]
     Active Substance: SUCRALFATE
  27. POTASSIUM [Concomitant]
     Active Substance: POTASSIUM

REACTIONS (12)
  - Speech disorder [Recovering/Resolving]
  - Pneumonia [Recovering/Resolving]
  - Throat irritation [Not Recovered/Not Resolved]
  - Aphonia [Not Recovered/Not Resolved]
  - Illness [Unknown]
  - Off label use [Unknown]
  - Pneumonia [Unknown]
  - Hypoacusis [Unknown]
  - Pneumonia bacterial [Unknown]
  - Illness [Unknown]
  - Chronic obstructive pulmonary disease [Unknown]
  - Respiratory tract infection bacterial [Unknown]

NARRATIVE: CASE EVENT DATE: 20210520
